FAERS Safety Report 8404107-3 (Version None)
Quarter: 2012Q2

REPORT INFORMATION
  Report Type: 
  Country: None (occurrence: None)
  Receive Date: 20120601
  Receipt Date: 20120529
  Transmission Date: 20120825
  Serious: Yes (Other)
  Sender: FDA-Public Use
  Company Number: PHHY2012KR045816

PATIENT
  Age: 55 Year
  Sex: Male

DRUGS (1)
  1. WARFARIN SODIUM [Suspect]
     Indication: ANGIOPATHY

REACTIONS (9)
  - PARESIS [None]
  - GROIN PAIN [None]
  - MUSCULAR WEAKNESS [None]
  - MUSCLE HAEMORRHAGE [None]
  - HYPOAESTHESIA [None]
  - HYPOREFLEXIA [None]
  - GAIT DISTURBANCE [None]
  - NEUROPATHY PERIPHERAL [None]
  - NERVE COMPRESSION [None]
